FAERS Safety Report 4786114-5 (Version None)
Quarter: 2005Q4

REPORT INFORMATION
  Report Type: 
  Country: None (occurrence: None)
  Receive Date: 20051003
  Receipt Date: 20050919
  Transmission Date: 20060501
  Serious: Yes (Other)
  Sender: FDA-Public Use
  Company Number: US-AMGEN-US151157

PATIENT
  Sex: Female
  Weight: 115.3 kg

DRUGS (1)
  1. ENBREL [Suspect]
     Indication: RHEUMATOID ARTHRITIS
     Route: 058
     Dates: start: 20050421, end: 20050615

REACTIONS (3)
  - BALANCE DISORDER [None]
  - INJECTION SITE REACTION [None]
  - VERTIGO [None]
